FAERS Safety Report 7400115-X (Version None)
Quarter: 2011Q2

REPORT INFORMATION
  Report Type: 
  Country: None (occurrence: None)
  Receive Date: 20110407
  Receipt Date: 20110323
  Transmission Date: 20111010
  Serious: Yes (Other)
  Sender: FDA-Public Use
  Company Number: PHHY2011US24449

PATIENT
  Sex: Female
  Weight: 57.596 kg

DRUGS (6)
  1. CALCIUM [Concomitant]
     Dosage: 600 MG
     Route: 048
  2. AMLODIPINE [Concomitant]
     Dosage: 2.5 MG
     Route: 048
  3. PRAVASTATIN [Concomitant]
     Dosage: 40 MG
     Route: 048
  4. MULTI-VITAMINS [Concomitant]
     Route: 048
  5. VITAMIN D [Concomitant]
     Dosage: 1000 U
     Route: 048
  6. RECLAST [Suspect]
     Dosage: 5MG/100ML EVERY YEAR
     Route: 042

REACTIONS (4)
  - BALANCE DISORDER [None]
  - DIZZINESS [None]
  - FALL [None]
  - HEAD INJURY [None]
